FAERS Safety Report 7905327-4 (Version None)
Quarter: 2011Q4

REPORT INFORMATION
  Report Type: 
  Country: None (occurrence: None)
  Receive Date: 20111109
  Receipt Date: 20111027
  Transmission Date: 20120403
  Serious: Yes (Hospitalization)
  Sender: FDA-Public Use
  Company Number: US-RB-033569-11

PATIENT
  Age: 34 Year
  Sex: Female

DRUGS (1)
  1. SUBOXONE [Suspect]
     Indication: DRUG DEPENDENCE
     Dosage: UNKNOWN
     Route: 060
     Dates: start: 20110701

REACTIONS (11)
  - VICTIM OF SEXUAL ABUSE [None]
  - ABDOMINAL PAIN [None]
  - DRUG DEPENDENCE [None]
  - NAUSEA [None]
  - BLOOD SODIUM DECREASED [None]
  - FATIGUE [None]
  - VICTIM OF CRIME [None]
  - BLOOD IRON DECREASED [None]
  - SLEEP TERROR [None]
  - RIB FRACTURE [None]
  - VITAMIN B12 DECREASED [None]
